FAERS Safety Report 16398476 (Version 1)
Quarter: 2019Q2

REPORT INFORMATION
  Report Type: Spontaneous
  Country: US (occurrence: US)
  Receive Date: 20190606
  Receipt Date: 20190606
  Transmission Date: 20190711
  Serious: No
  Sender: FDA-Public Use
  Company Number: US-TEVA-2019-US-1050900

PATIENT
  Sex: Female

DRUGS (14)
  1. BACLOFEN. [Concomitant]
     Active Substance: BACLOFEN
  2. CRANBERRY. [Concomitant]
     Active Substance: CRANBERRY
  3. FOLIC ACID. [Concomitant]
     Active Substance: FOLIC ACID
  4. COSENTYX [Concomitant]
     Active Substance: SECUKINUMAB
  5. CLOBETASOL [Concomitant]
     Active Substance: CLOBETASOL
  6. VITAMIN C [Concomitant]
     Active Substance: ASCORBIC ACID
  7. METHOTREXATE. [Concomitant]
     Active Substance: METHOTREXATE
  8. NEURONTIN [Concomitant]
     Active Substance: GABAPENTIN
  9. MELATONIN [Concomitant]
     Active Substance: MELATONIN
  10. CALCIUM [Concomitant]
     Active Substance: CALCIUM
  11. COPAXONE [Suspect]
     Active Substance: GLATIRAMER ACETATE
     Indication: MULTIPLE SCLEROSIS
     Route: 058
     Dates: start: 20190103
  12. AMPYRA [Concomitant]
     Active Substance: DALFAMPRIDINE
  13. SYNTHROID [Concomitant]
     Active Substance: LEVOTHYROXINE SODIUM
  14. WELLBUTRIN [Concomitant]
     Active Substance: BUPROPION HYDROCHLORIDE

REACTIONS (6)
  - Decreased interest [Not Recovered/Not Resolved]
  - Muscular weakness [Not Recovered/Not Resolved]
  - Depression [Not Recovered/Not Resolved]
  - Fatigue [Not Recovered/Not Resolved]
  - Pain [Not Recovered/Not Resolved]
  - Loss of personal independence in daily activities [Not Recovered/Not Resolved]
